FAERS Safety Report 15783515 (Version 1)
Quarter: 2019Q1

REPORT INFORMATION
  Report Type: Spontaneous
  Country: US (occurrence: US)
  Receive Date: 20190102
  Receipt Date: 20190102
  Transmission Date: 20190417
  Serious: No
  Sender: FDA-Public Use
  Company Number: US-PFIZER INC-2019000584

PATIENT
  Age: 70 Year
  Sex: Female

DRUGS (1)
  1. GENOTROPIN [Suspect]
     Active Substance: SOMATROPIN
     Dosage: 0.6 G, DAILY

REACTIONS (18)
  - Low density lipoprotein increased [Unknown]
  - Non-high-density lipoprotein cholesterol increased [Unknown]
  - Blood thyroid stimulating hormone decreased [Unknown]
  - Blood urea increased [Unknown]
  - Red cell distribution width increased [Unknown]
  - Blood glucose increased [Unknown]
  - Dehydroepiandrosterone decreased [Unknown]
  - Apolipoprotein B increased [Unknown]
  - Blood carbon monoxide increased [Unknown]
  - Blood testosterone free increased [Unknown]
  - Gamma-glutamyltransferase increased [Unknown]
  - Platelet count increased [Unknown]
  - White blood cell count decreased [Unknown]
  - Cortisol increased [Unknown]
  - Blood iron increased [Unknown]
  - Mean cell volume increased [Unknown]
  - Mean cell haemoglobin increased [Unknown]
  - Blood cholesterol increased [Unknown]

NARRATIVE: CASE EVENT DATE: 20170511
